FAERS Safety Report 16903872 (Version 2)
Quarter: 2019Q4

REPORT INFORMATION
  Report Type: Report from Study
  Country: TH (occurrence: TH)
  Receive Date: 20191010
  Receipt Date: 20191015
  Transmission Date: 20200122
  Serious: Yes (Death, Other)
  Sender: FDA-Public Use
  Company Number: TH-TAKEDA-2019TUS056204

PATIENT
  Age: 56 Year
  Sex: Male

DRUGS (2)
  1. DARZALEX [Suspect]
     Active Substance: DARATUMUMAB
     Indication: PLASMA CELL MYELOMA
     Dosage: 1000 MILLIGRAM, QD
     Route: 065
     Dates: start: 20180925, end: 20190116
  2. BORTEZOMIB. [Suspect]
     Active Substance: BORTEZOMIB
     Indication: PLASMA CELL MYELOMA
     Dosage: 2.3 MILLIGRAM, QD
     Route: 065
     Dates: start: 20180925, end: 20190126

REACTIONS (1)
  - Septic shock [Fatal]
